FAERS Safety Report 13332105 (Version 1)
Quarter: 2017Q1

REPORT INFORMATION
  Report Type: Report from Study
  Country: US (occurrence: US)
  Receive Date: 20170313
  Receipt Date: 20170313
  Transmission Date: 20170428
  Serious: Yes (Hospitalization, Other)
  Sender: FDA-Public Use
  Company Number: US-BIOGEN-2017BI00369631

PATIENT
  Age: 47 Year
  Sex: Male

DRUGS (1)
  1. TECFIDERA [Suspect]
     Active Substance: DIMETHYL FUMARATE
     Indication: MULTIPLE SCLEROSIS
     Route: 048
     Dates: start: 20160817, end: 20161117

REACTIONS (4)
  - Renal impairment [Unknown]
  - Vomiting [Unknown]
  - Diabetes mellitus [Unknown]
  - Pneumonia [Unknown]

NARRATIVE: CASE EVENT DATE: 201611
